FAERS Safety Report 17872434 (Version 13)
Quarter: 2022Q1

REPORT INFORMATION
  Report Type: Spontaneous
  Country: US (occurrence: US)
  Receive Date: 20200608
  Receipt Date: 20220128
  Transmission Date: 20220423
  Serious: Yes (Other)
  Sender: FDA-Public Use
  Company Number: US-DSJP-DSU-2020-115793

PATIENT
  Sex: Female

DRUGS (3)
  1. TURALIO [Suspect]
     Active Substance: PEXIDARTINIB HYDROCHLORIDE
     Indication: Connective tissue neoplasm
     Dosage: 400 MG, BID
     Route: 048
     Dates: start: 20210308
  2. TURALIO [Suspect]
     Active Substance: PEXIDARTINIB HYDROCHLORIDE
     Indication: Soft tissue neoplasm
     Dosage: 400 MG, BID
     Route: 048
     Dates: start: 20200525
  3. TURALIO [Suspect]
     Active Substance: PEXIDARTINIB HYDROCHLORIDE
     Dosage: 400 MG, BID
     Route: 048
     Dates: start: 20210308

REACTIONS (14)
  - Pneumonia mycoplasmal [Unknown]
  - Surgery [Unknown]
  - Fatigue [Recovered/Resolved]
  - Hypertension [Not Recovered/Not Resolved]
  - Treatment noncompliance [Unknown]
  - Incorrect dose administered [Unknown]
  - Headache [Recovered/Resolved]
  - Gastrooesophageal reflux disease [Recovered/Resolved]
  - Product dose omission issue [Recovered/Resolved]
  - COVID-19 [Recovered/Resolved]
  - Hair colour changes [Recovered/Resolved]
  - Product availability issue [Recovered/Resolved]
  - Blood iron decreased [Recovered/Resolved]
  - Abdominal discomfort [Recovered/Resolved]

NARRATIVE: CASE EVENT DATE: 20200101
